FAERS Safety Report 5434328-3 (Version None)
Quarter: 2007Q3

REPORT INFORMATION
  Report Type: 
  Country: None (occurrence: None)
  Receive Date: 20070831
  Receipt Date: 20070721
  Transmission Date: 20080115
  Serious: Yes (Other)
  Sender: FDA-Public Use
  Company Number: US-BAYER-200712761BCC

PATIENT
  Sex: Male

DRUGS (2)
  1. ASPIRIN [Suspect]
     Indication: ANTICOAGULANT THERAPY
     Route: 048
     Dates: end: 19801104
  2. ASPIRIN [Suspect]
     Route: 048

REACTIONS (4)
  - CORONARY ARTERY BYPASS [None]
  - ELECTROCARDIOGRAM ABNORMAL [None]
  - ERUCTATION [None]
  - EXERCISE ELECTROCARDIOGRAM ABNORMAL [None]
